FAERS Safety Report 10619952 (Version 1)
Quarter: 2014Q4

REPORT INFORMATION
  Report Type: Spontaneous
  Country: US (occurrence: None)
  Receive Date: 20141128
  Receipt Date: 20141128
  Transmission Date: 20150529
  Serious: Yes (Other)
  Sender: FDA-Public Use
  Company Number: 2014COR00126

PATIENT
  Age: 26 Year
  Sex: Male
  Weight: 63.5 kg

DRUGS (3)
  1. KLONOPIN [Concomitant]
     Active Substance: CLONAZEPAM
  2. LAMICTAL [Concomitant]
     Active Substance: LAMOTRIGINE
  3. AMPHETAMINE [Suspect]
     Active Substance: AMPHETAMINE
     Indication: ATTENTION DEFICIT/HYPERACTIVITY DISORDER
     Route: 048
     Dates: start: 2014, end: 2014

REACTIONS (14)
  - Depression [None]
  - Ocular discomfort [None]
  - Heart rate decreased [None]
  - Pruritus generalised [None]
  - Tachycardia [None]
  - Eye irritation [None]
  - Paranoia [None]
  - Disturbance in attention [None]
  - Feeling abnormal [None]
  - Product substitution issue [None]
  - Product quality issue [None]
  - Headache [None]
  - Palpitations [None]
  - Anxiety [None]

NARRATIVE: CASE EVENT DATE: 2014
